FAERS Safety Report 9868375 (Version 2)
Quarter: 2014Q1

REPORT INFORMATION
  Report Type: Spontaneous
  Country: PT (occurrence: PT)
  Receive Date: 20140204
  Receipt Date: 20140206
  Transmission Date: 20141002
  Serious: Yes (Hospitalization)
  Sender: FDA-Public Use
  Company Number: PHHY2014PT012576

PATIENT
  Sex: 0

DRUGS (3)
  1. GILENYA [Suspect]
     Route: 048
     Dates: start: 20130603, end: 20130603
  2. GILENYA [Suspect]
     Route: 048
     Dates: start: 20131201
  3. TYSABRI [Suspect]
     Indication: RELAPSING-REMITTING MULTIPLE SCLEROSIS
     Dosage: 300 MG, QMO
     Route: 042
     Dates: start: 20091116, end: 20121210

REACTIONS (1)
  - Bundle branch block left [Recovered/Resolved]
